FAERS Safety Report 15095888 (Version 1)
Quarter: 2018Q3

REPORT INFORMATION
  Report Type: Spontaneous
  Country: DK (occurrence: DK)
  Receive Date: 20180702
  Receipt Date: 20180702
  Transmission Date: 20181010
  Serious: Yes (Death, Hospitalization)
  Sender: FDA-Public Use
  Company Number: PHHY2018DK056618

PATIENT
  Age: 27 Year
  Sex: Male

DRUGS (1)
  1. QUETIAPINE. [Suspect]
     Active Substance: QUETIAPINE
     Indication: PRODUCT USED FOR UNKNOWN INDICATION
     Dosage: UNK
     Route: 065

REACTIONS (11)
  - Duodenitis [Fatal]
  - Vomiting [Unknown]
  - Multiple organ dysfunction syndrome [Fatal]
  - Obesity [Not Recovered/Not Resolved]
  - Diabetes mellitus [Fatal]
  - Sepsis [Fatal]
  - Delirium [Fatal]
  - Pancreatitis acute [Fatal]
  - Metabolic acidosis [Fatal]
  - Abdominal pain [Unknown]
  - Hypertriglyceridaemia [Fatal]
